FAERS Safety Report 9249280 (Version 1)
Quarter: 2013Q2

REPORT INFORMATION
  Report Type: Other
  Country: US (occurrence: US)
  Receive Date: 20130423
  Receipt Date: 20130423
  Transmission Date: 20140414
  Serious: Yes (Death)
  Sender: FDA-Public Use
  Company Number: US-BRISTOL-MYERS SQUIBB COMPANY-18804187

PATIENT
  Age: 57 Year
  Sex: Female

DRUGS (11)
  1. METFORMIN HCL [Suspect]
     Indication: DIABETES MELLITUS
  2. MIRTAZAPINE [Concomitant]
  3. ATORVASTATIN [Concomitant]
  4. GLIPIZIDE [Concomitant]
  5. PIOGLITAZONE HCL [Concomitant]
  6. GLIMEPIRIDE [Concomitant]
  7. TRAZODONE HCL [Concomitant]
  8. LOSARTAN [Concomitant]
  9. CLONAZEPAM [Concomitant]
  10. UBIDECARENONE [Concomitant]
  11. ASPIRIN [Concomitant]

REACTIONS (2)
  - Completed suicide [Fatal]
  - Intentional overdose [Fatal]
